FAERS Safety Report 10416927 (Version 2)
Quarter: 2014Q4

REPORT INFORMATION
  Report Type: Spontaneous
  Country: US (occurrence: None)
  Receive Date: 20140825
  Receipt Date: 20141016
  Transmission Date: 20150528
  Serious: Yes (Hospitalization)
  Sender: FDA-Public Use
  Company Number: HYP201408-000053

PATIENT
  Age: 22 Year
  Sex: Female

DRUGS (2)
  1. ARGININE [Suspect]
     Active Substance: ARGININE
  2. RAVICTI [Suspect]
     Active Substance: GLYCEROL PHENYLBUTYRATE
     Indication: UREA CYCLE ENZYME DEFICIENCY
     Dates: start: 201303, end: 201408

REACTIONS (9)
  - Oropharyngeal pain [None]
  - Hyperammonaemic crisis [None]
  - Pyrexia [None]
  - Fatigue [None]
  - Lethargy [None]
  - Ammonia increased [None]
  - Nausea [None]
  - Sinusitis [None]
  - Vomiting [None]

NARRATIVE: CASE EVENT DATE: 201408
